FAERS Safety Report 10701476 (Version 2)
Quarter: 2015Q2

REPORT INFORMATION
  Report Type: Spontaneous
  Country: US (occurrence: US)
  Receive Date: 20150109
  Receipt Date: 20150428
  Transmission Date: 20150821
  Serious: Yes (Life-Threatening, Other)
  Sender: FDA-Public Use
  Company Number: US-B.I. PHARMACEUTICALS,INC./RIDGEFIELD-2015-BI-01349GD

PATIENT
  Age: 85 Year
  Sex: Female

DRUGS (1)
  1. PRADAXA [Suspect]
     Active Substance: DABIGATRAN ETEXILATE MESYLATE
     Indication: ATRIAL FIBRILLATION
     Route: 065

REACTIONS (9)
  - Haemothorax [Recovered/Resolved]
  - Coagulopathy [Unknown]
  - Pericardial effusion [Unknown]
  - Medical device complication [Recovered/Resolved]
  - Pericardial haemorrhage [Recovered/Resolved]
  - Haemodynamic instability [Recovered/Resolved]
  - Shock [Recovered/Resolved]
  - Hypotension [Unknown]
  - Cardiac perforation [Recovered/Resolved]
